FAERS Safety Report 15764608 (Version 1)
Quarter: 2018Q4

REPORT INFORMATION
  Report Type: Spontaneous
  Country: GB (occurrence: GB)
  Receive Date: 20181227
  Receipt Date: 20181227
  Transmission Date: 20190205
  Serious: Yes (Other)
  Sender: FDA-Public Use
  Company Number: GB-ACCORD-098298

PATIENT
  Age: 81 Year
  Sex: Male
  Weight: 74 kg

DRUGS (4)
  1. LANSOPRAZOLE. [Concomitant]
     Active Substance: LANSOPRAZOLE
     Dosage: 1 -2 DAILY.
  2. HYPROMELLOSE/HYPROMELLOSE PHTHALATE [Concomitant]
     Dosage: 4 TIMES A DAY.
     Dates: start: 20090323
  3. ATORVASTATIN/ATORVASTATIN CALCIUM [Suspect]
     Active Substance: ATORVASTATIN CALCIUM
     Indication: PRODUCT USED FOR UNKNOWN INDICATION
  4. ACETYLSALICYLIC ACID [Concomitant]
     Active Substance: ASPIRIN
     Dosage: AFTER FOOD.
     Dates: start: 20170807

REACTIONS (3)
  - Pain [Unknown]
  - Blood creatine phosphokinase increased [Unknown]
  - Pain in extremity [Unknown]

NARRATIVE: CASE EVENT DATE: 20180226
